FAERS Safety Report 25103715 (Version 1)
Quarter: 2025Q1

REPORT INFORMATION
  Report Type: Spontaneous
  Country: CA (occurrence: CA)
  Receive Date: 20250321
  Receipt Date: 20250321
  Transmission Date: 20250409
  Serious: Yes (Hospitalization)
  Sender: MERCK SHARP & DOHME LLC
  Company Number: CA-009507513-2266504

PATIENT
  Age: 72 Year
  Sex: Female

DRUGS (17)
  1. ERTAPENEM [Suspect]
     Active Substance: ERTAPENEM
     Route: 065
  2. FUROSEMIDE [Concomitant]
     Active Substance: FUROSEMIDE
     Route: 065
  3. MELATONIN 5 MG [Concomitant]
     Route: 065
  4. PANTOPRAZOLE [Concomitant]
     Active Substance: PANTOPRAZOLE
     Route: 065
  5. PEG 3350 [Concomitant]
     Active Substance: POLYETHYLENE GLYCOL 3350
     Route: 065
  6. PERINDOPRIL [Concomitant]
     Active Substance: PERINDOPRIL
     Route: 065
  7. POTASSIUM CHLORIDE 20 [Concomitant]
     Route: 065
  8. ROSUVASTATIN [Concomitant]
     Active Substance: ROSUVASTATIN
     Route: 065
  9. SPIRONOLACTONE [Concomitant]
     Active Substance: SPIRONOLACTONE
     Route: 065
  10. TRURAPI CARTRIDGE [Concomitant]
     Route: 065
  11. VANCOMYCIN HYDROCHLORIDE [Concomitant]
     Active Substance: VANCOMYCIN HYDROCHLORIDE
     Route: 065
  12. VITAMIN D TAB 1000UNIT [Concomitant]
     Route: 065
  13. ASPIRIN [Concomitant]
     Active Substance: ASPIRIN
     Route: 065
  14. BASAGLAR CARTRIDGE [Concomitant]
     Route: 065
  15. BISOPROLOL [Concomitant]
     Active Substance: BISOPROLOL
     Route: 065
  16. CASPOFUNGIN [Concomitant]
     Active Substance: CASPOFUNGIN
     Route: 065
  17. FRAGMIN SINGLE DOSE  AMPOULE [Concomitant]
     Route: 065

REACTIONS (5)
  - Endotracheal intubation [Recovering/Resolving]
  - Cyanosis [Recovering/Resolving]
  - Postictal state [Recovering/Resolving]
  - Seizure [Recovering/Resolving]
  - Coma scale abnormal [Recovering/Resolving]
